FAERS Safety Report 5122360-9 (Version None)
Quarter: 2006Q4

REPORT INFORMATION
  Report Type: 
  Country: None (occurrence: None)
  Receive Date: 20061004
  Receipt Date: 20060927
  Transmission Date: 20070319
  Serious: Yes (Hospitalization)
  Sender: FDA-Public Use
  Company Number: 2006BH013297

PATIENT
  Age: 66 Year
  Sex: Female

DRUGS (1)
  1. DURAMORPH PF [Suspect]
     Indication: PAIN
     Dosage: 0.7 MG; CONTINUOUS; INTH
     Route: 037

REACTIONS (1)
  - NONSPECIFIC REACTION [None]
